FAERS Safety Report 13183894 (Version 1)
Quarter: 2017Q1

REPORT INFORMATION
  Report Type: Spontaneous
  Country: IT (occurrence: IT)
  Receive Date: 20170203
  Receipt Date: 20170203
  Transmission Date: 20170428
  Serious: Yes (Hospitalization)
  Sender: FDA-Public Use
  Company Number: IT-ASTRAZENECA-2017SE11610

PATIENT
  Age: 62 Year
  Sex: Male

DRUGS (2)
  1. MERREM [Suspect]
     Active Substance: MEROPENEM
     Indication: PNEUMONITIS
     Route: 042
     Dates: start: 20161227, end: 20170109
  2. KLACID [Concomitant]
     Active Substance: CLARITHROMYCIN

REACTIONS (2)
  - Lethargy [Recovering/Resolving]
  - Confusional state [Recovering/Resolving]

NARRATIVE: CASE EVENT DATE: 20170102
